FAERS Safety Report 8584621-0 (Version None)
Quarter: 2012Q3

REPORT INFORMATION
  Report Type: 
  Country: None (occurrence: None)
  Receive Date: 20120810
  Receipt Date: 20120731
  Transmission Date: 20120928
  Serious: Yes (Hospitalization, Other)
  Sender: FDA-Public Use
  Company Number: US-BAYER-2012-039202

PATIENT
  Age: 40 Year
  Sex: Female
  Weight: 114.7 kg

DRUGS (6)
  1. YASMIN [Suspect]
     Dosage: UNK
     Route: 048
  2. YAZ [Suspect]
     Indication: MENORRHAGIA
     Dosage: UNK
     Route: 048
  3. DROSPIRENONE AND ETHINYL ESTRADIOL [Suspect]
     Dosage: UNK
     Route: 048
  4. YAZ [Suspect]
     Indication: VAGINAL HAEMORRHAGE
  5. MULTI-VITAMIN [Concomitant]
     Dosage: UNK UNK, QD
  6. DILTIAZEM [Concomitant]

REACTIONS (4)
  - PULMONARY EMBOLISM [None]
  - DEEP VEIN THROMBOSIS [None]
  - PAIN [None]
  - INJURY [None]
